FAERS Safety Report 16292056 (Version 1)
Quarter: 2019Q2

REPORT INFORMATION
  Report Type: Other
  Country: US (occurrence: US)
  Receive Date: 20190509
  Receipt Date: 20190509
  Transmission Date: 20190711
  Serious: No
  Sender: FDA-Public Use
  Company Number: US-ALKERMES INC.-ALK-2018-002541

PATIENT
  Age: 27 Year
  Sex: Female

DRUGS (1)
  1. VIVITROL [Suspect]
     Active Substance: NALTREXONE
     Indication: PRODUCT USED FOR UNKNOWN INDICATION
     Dosage: 380 MG, QMO
     Route: 051
     Dates: start: 201701

REACTIONS (4)
  - Intentional product use issue [Unknown]
  - Therapeutic response unexpected [Unknown]
  - Substance abuse [Unknown]
  - Somnolence [Unknown]

NARRATIVE: CASE EVENT DATE: 201701
